FAERS Safety Report 13987702 (Version 1)
Quarter: 2017Q3

REPORT INFORMATION
  Report Type: Spontaneous
  Country: SE (occurrence: SE)
  Receive Date: 20170919
  Receipt Date: 20170919
  Transmission Date: 20171128
  Serious: Yes (Life-Threatening, Hospitalization)
  Sender: FDA-Public Use
  Company Number: SE-PFIZER INC-2017402266

PATIENT
  Age: 70 Year
  Sex: Male

DRUGS (15)
  1. CILAXORAL [Concomitant]
     Active Substance: SODIUM PICOSULFATE
     Dates: start: 20170811
  2. MORPHINE [Concomitant]
     Active Substance: MORPHINE
     Dates: start: 20170811
  3. DELTISON /00044701/ [Concomitant]
     Active Substance: PREDNISONE
     Dates: start: 20170815, end: 20170818
  4. VELCADE [Suspect]
     Active Substance: BORTEZOMIB
     Dosage: 2,4MG EACH TIME
     Route: 058
     Dates: start: 20170822, end: 20170822
  5. OMEPRAZOLE. [Concomitant]
     Active Substance: OMEPRAZOLE
     Dates: start: 20170822
  6. ALVEDON [Concomitant]
     Active Substance: ACETAMINOPHEN
     Dates: start: 20170811
  7. DOLCONTIN [Suspect]
     Active Substance: MORPHINE
     Indication: BACK PAIN
     Dosage: 3 DF, 2X/DAY
     Dates: start: 20170811
  8. LACTULOSE. [Concomitant]
     Active Substance: LACTULOSE
  9. VELCADE [Suspect]
     Active Substance: BORTEZOMIB
     Indication: PLASMA CELL MYELOMA
     Dosage: 2.4MG EACH TIME
     Route: 058
     Dates: start: 20170815, end: 20170815
  10. PRIMPERAN [Concomitant]
     Active Substance: METOCLOPRAMIDE HYDROCHLORIDE
     Dates: start: 20170823
  11. ONDANSETRON [Concomitant]
     Active Substance: ONDANSETRON
     Dates: start: 20170811
  12. MOVICOL [Concomitant]
     Active Substance: POLYETHYLENE GLYCOL 3350\POTASSIUM CHLORIDE\SODIUM BICARBONATE\SODIUM CHLORIDE
     Dates: start: 20170821
  13. ALKERAN [Concomitant]
     Active Substance: MELPHALAN
     Dates: start: 20170815, end: 20170818
  14. ISOPTIN /00014301/ [Concomitant]
     Dates: start: 1991
  15. ACICLOVIR [Concomitant]
     Active Substance: ACYCLOVIR
     Dates: start: 20170811

REACTIONS (1)
  - Ileus [Not Recovered/Not Resolved]

NARRATIVE: CASE EVENT DATE: 20170824
